FAERS Safety Report 15975672 (Version 5)
Quarter: 2020Q4

REPORT INFORMATION
  Report Type: Report from Study
  Country: None (occurrence: AR)
  Receive Date: 20190218
  Receipt Date: 20201230
  Transmission Date: 20210113
  Serious: Yes (Other)
  Sender: FDA-Public Use
  Company Number: AR-ABBVIE-19K-007-2668825-00

PATIENT
  Age: 35 Year
  Sex: Male

DRUGS (3)
  1. HUMIRA [Suspect]
     Active Substance: ADALIMUMAB
     Route: 058
  2. HUMIRA [Suspect]
     Active Substance: ADALIMUMAB
     Route: 058
     Dates: start: 202008
  3. HUMIRA [Suspect]
     Active Substance: ADALIMUMAB
     Indication: HIDRADENITIS
     Route: 058
     Dates: start: 20170503

REACTIONS (9)
  - Therapeutic product effect decreased [Unknown]
  - Inflammation [Not Recovered/Not Resolved]
  - Infected fistula [Not Recovered/Not Resolved]
  - Limb injury [Unknown]
  - Bloody discharge [Unknown]
  - Blood loss anaemia [Recovering/Resolving]
  - Bacterial infection [Unknown]
  - Fistula [Recovering/Resolving]
  - Orchitis [Unknown]

NARRATIVE: CASE EVENT DATE: 201806
